FAERS Safety Report 15288999 (Version 9)
Quarter: 2019Q1

REPORT INFORMATION
  Report Type: Report from Study
  Country: DE (occurrence: DE)
  Receive Date: 20180817
  Receipt Date: 20190322
  Transmission Date: 20190417
  Serious: Yes (Hospitalization, Other)
  Sender: FDA-Public Use
  Company Number: DE-ROCHE-2157763

PATIENT
  Age: 65 Year
  Sex: Male
  Weight: 80 kg

DRUGS (15)
  1. COBIMETINIB. [Suspect]
     Active Substance: COBIMETINIB
     Indication: MALIGNANT MELANOMA
     Route: 048
     Dates: start: 20180707, end: 20180716
  2. VEMURAFENIB. [Suspect]
     Active Substance: VEMURAFENIB
     Indication: MALIGNANT MELANOMA
     Route: 048
     Dates: start: 20180707, end: 20180716
  3. VEMURAFENIB. [Suspect]
     Active Substance: VEMURAFENIB
     Route: 048
     Dates: start: 20180823, end: 20180823
  4. COBIMETINIB. [Suspect]
     Active Substance: COBIMETINIB
     Route: 048
     Dates: start: 20180709
  5. AMLODIPIN [Concomitant]
     Active Substance: AMLODIPINE BESYLATE
     Indication: HYPERTENSION
     Route: 048
     Dates: start: 201711, end: 20180718
  6. RAMIPRIL. [Concomitant]
     Active Substance: RAMIPRIL
     Indication: HYPERTENSION
     Route: 048
     Dates: start: 201807
  7. METHYLPREDNISOLON [Suspect]
     Active Substance: METHYLPREDNISOLONE
     Route: 048
     Dates: start: 20180812, end: 20180814
  8. AMLODIPIN [Concomitant]
     Active Substance: AMLODIPINE BESYLATE
     Route: 048
     Dates: start: 201807
  9. HEPARIN [Concomitant]
     Active Substance: HEPARIN SODIUM
     Indication: THROMBOSIS PROPHYLAXIS
     Route: 058
     Dates: start: 201807, end: 201807
  10. PANTOPRAZOL [Concomitant]
     Active Substance: PANTOPRAZOLE SODIUM
     Indication: PROPHYLAXIS AGAINST GASTROINTESTINAL ULCER
     Route: 048
     Dates: start: 20180718, end: 20181030
  11. METHYLPREDNISOLON [Suspect]
     Active Substance: METHYLPREDNISOLONE
     Indication: DERMATITIS ALLERGIC
     Route: 048
     Dates: start: 20180719
  12. METHYLPREDNISOLON [Suspect]
     Active Substance: METHYLPREDNISOLONE
     Route: 048
     Dates: start: 20180815, end: 20180817
  13. DELIX (GERMANY) [Concomitant]
     Indication: HYPERTENSION
     Route: 048
     Dates: start: 201711, end: 20180718
  14. CLEXANE [Concomitant]
     Active Substance: ENOXAPARIN SODIUM
     Indication: THROMBOSIS PROPHYLAXIS
     Route: 058
     Dates: start: 201807, end: 201808
  15. IRENAT [Concomitant]
     Active Substance: SODIUM PERCHLORATE
     Dosage: DROP?COMPUTED TOMOGRAPHY WITH CONTRAST AGENT
     Route: 048
     Dates: start: 20180827, end: 20180830

REACTIONS (32)
  - Dermatitis allergic [Recovered/Resolved]
  - Stevens-Johnson syndrome [Recovered/Resolved]
  - Acute kidney injury [Recovered/Resolved]
  - Pyelocaliectasis [Recovering/Resolving]
  - Pyrexia [Recovered/Resolved]
  - Hyperthyroidism [Recovering/Resolving]
  - Urinary tract infection [Recovered/Resolved]
  - Aspergillus test positive [Unknown]
  - Skin disorder [Unknown]
  - Candida infection [Recovered/Resolved]
  - Pyrexia [Unknown]
  - Chills [Unknown]
  - Pyrexia [Recovered/Resolved]
  - Laryngitis [Recovered/Resolved]
  - Chills [Recovered/Resolved]
  - Stomatitis [Recovering/Resolving]
  - Vomiting [Recovered/Resolved]
  - Hypocalcaemia [Recovering/Resolving]
  - Pneumonia [Recovered/Resolved]
  - Rash generalised [Unknown]
  - Hypokalaemia [Recovered/Resolved]
  - Diarrhoea [Recovered/Resolved]
  - Sunburn [Recovering/Resolving]
  - Vomiting [Recovered/Resolved]
  - Cough [Recovered/Resolved]
  - Oral bacterial infection [Unknown]
  - General physical health deterioration [Recovered/Resolved]
  - Escherichia infection [Recovering/Resolving]
  - Oral candidiasis [Recovered/Resolved]
  - Rash [Recovered/Resolved]
  - Skin infection [Recovered/Resolved]
  - Staphylococcus test positive [Recovering/Resolving]

NARRATIVE: CASE EVENT DATE: 20180712
